FAERS Safety Report 8322340-6 (Version None)
Quarter: 2012Q2

REPORT INFORMATION
  Report Type: 
  Country: None (occurrence: None)
  Receive Date: 20120430
  Receipt Date: 20120423
  Transmission Date: 20120825
  Serious: Yes (Other)
  Sender: FDA-Public Use
  Company Number: US-ASTRAZENECA-2011SE64016

PATIENT
  Age: 58 Year
  Sex: Male
  Weight: 129.7 kg

DRUGS (12)
  1. MIRAPEX [Concomitant]
  2. CRESTOR [Suspect]
     Indication: BLOOD CHOLESTEROL INCREASED
     Route: 048
     Dates: start: 20111001
  3. LASIX [Concomitant]
  4. GLUCOPHAGE [Concomitant]
  5. ASPIRIN [Concomitant]
  6. EFFEXOR [Concomitant]
  7. LOPRESSOR [Concomitant]
  8. TOPROL-XL [Suspect]
     Indication: HYPERTENSION
     Route: 048
     Dates: start: 20111001
  9. KLONOPIN [Concomitant]
     Route: 048
  10. NORVASC [Concomitant]
  11. GLIMEPIRIDE [Concomitant]
     Dosage: 0.5 AT SUPPER
  12. PLAVIX [Concomitant]

REACTIONS (1)
  - MYOCARDIAL INFARCTION [None]
